FAERS Safety Report 11734567 (Version 1)
Quarter: 2015Q4

REPORT INFORMATION
  Report Type: Spontaneous
  Country: GB (occurrence: GB)
  Receive Date: 20151113
  Receipt Date: 20151113
  Transmission Date: 20160304
  Serious: Yes (Other)
  Sender: FDA-Public Use
  Company Number: GB-GALDERMA-GB15008025

PATIENT
  Age: 13 Year
  Sex: Male
  Weight: 58.06 kg

DRUGS (2)
  1. PARACETAMOL AND CODEINE PHOSPHATE [Concomitant]
  2. EPIDUO [Suspect]
     Active Substance: ADAPALENE\BENZOYL PEROXIDE
     Indication: ACNE
     Dosage: 2.5%-0.1%
     Route: 061

REACTIONS (2)
  - Burning sensation [Not Recovered/Not Resolved]
  - Asthenopia [Not Recovered/Not Resolved]

NARRATIVE: CASE EVENT DATE: 20151014
